FAERS Safety Report 4730581-X (Version None)
Quarter: 2005Q3

REPORT INFORMATION
  Report Type: 
  Country: None (occurrence: None)
  Receive Date: 20050725
  Receipt Date: 20050314
  Transmission Date: 20060218
  Serious: No
  Sender: FDA-Public Use
  Company Number: USA050393241

PATIENT
  Age: 11 Year
  Sex: Male
  Weight: 41 kg

DRUGS (3)
  1. STRATTERA [Suspect]
     Indication: ATTENTION DEFICIT/HYPERACTIVITY DISORDER
     Dosage: 18 MG IN THE EVENING
     Dates: start: 20050301
  2. CARMEX [Concomitant]
  3. RITALIN [Concomitant]

REACTIONS (11)
  - ABNORMAL BEHAVIOUR [None]
  - AGGRESSION [None]
  - ANGER [None]
  - CHAPPED LIPS [None]
  - EMOTIONAL DISORDER [None]
  - EMOTIONAL DISORDER OF CHILDHOOD [None]
  - LIP PAIN [None]
  - MIDDLE INSOMNIA [None]
  - MOOD SWINGS [None]
  - NIGHTMARE [None]
  - SLEEP TALKING [None]
